FAERS Safety Report 12536067 (Version 1)
Quarter: 2016Q3

REPORT INFORMATION
  Report Type: Spontaneous
  Country: JP (occurrence: JP)
  Receive Date: 20160707
  Receipt Date: 20160707
  Transmission Date: 20161109
  Serious: Yes (Hospitalization)
  Sender: FDA-Public Use
  Company Number: JP-FRESENIUS KABI-FK201604130

PATIENT
  Age: 62 Year
  Sex: Female

DRUGS (3)
  1. CLOPIDOGREL [Suspect]
     Active Substance: CLOPIDOGREL BISULFATE
     Indication: ANGINA PECTORIS
  2. PACLITAXEL (MANUFACTURER UNKNOWN) [Suspect]
     Active Substance: PACLITAXEL
     Indication: OVARIAN CANCER RECURRENT
     Route: 065
  3. NEDAPLATIN [Suspect]
     Active Substance: NEDAPLATIN
     Indication: OVARIAN CANCER RECURRENT

REACTIONS (3)
  - Neutropenia [Unknown]
  - Febrile neutropenia [Unknown]
  - Drug interaction [Unknown]
